FAERS Safety Report 13467418 (Version 2)
Quarter: 2017Q2

REPORT INFORMATION
  Report Type: Spontaneous
  Country: US (occurrence: US)
  Receive Date: 20170421
  Receipt Date: 20170531
  Transmission Date: 20170830
  Serious: Yes (Death, Hospitalization)
  Sender: FDA-Public Use
  Company Number: US-JNJFOC-20170419471

PATIENT
  Age: 85 Year
  Sex: Male

DRUGS (4)
  1. XARELTO [Suspect]
     Active Substance: RIVAROXABAN
     Indication: ATRIAL FIBRILLATION
     Dosage: RIVAROXABAN 20 MG 1 TIME PER DAY AND 15 MG 1 TIME PER DAY
     Route: 048
     Dates: start: 20130711, end: 20160510
  2. ASPIRIN. [Suspect]
     Active Substance: ASPIRIN
     Indication: PRODUCT USED FOR UNKNOWN INDICATION
     Route: 048
     Dates: end: 201311
  3. XARELTO [Suspect]
     Active Substance: RIVAROXABAN
     Indication: CEREBROVASCULAR ACCIDENT PROPHYLAXIS
     Dosage: RIVAROXABAN 20 MG 1 TIME PER DAY AND 15 MG 1 TIME PER DAY
     Route: 048
     Dates: start: 20130711, end: 20160510
  4. XARELTO [Suspect]
     Active Substance: RIVAROXABAN
     Indication: THROMBOSIS PROPHYLAXIS
     Dosage: RIVAROXABAN 20 MG 1 TIME PER DAY AND 15 MG 1 TIME PER DAY
     Route: 048
     Dates: start: 20130711, end: 20160510

REACTIONS (4)
  - Shock haemorrhagic [Fatal]
  - Gastrointestinal haemorrhage [Recovering/Resolving]
  - Epistaxis [Recovered/Resolved]
  - Aortic aneurysm rupture [Fatal]

NARRATIVE: CASE EVENT DATE: 20131101
